FAERS Safety Report 8993193 (Version 2)
Quarter: 2013Q3

REPORT INFORMATION
  Report Type: Spontaneous
  Country: US (occurrence: US)
  Receive Date: 20130102
  Receipt Date: 20130702
  Transmission Date: 20140515
  Serious: Yes (Hospitalization)
  Sender: FDA-Public Use
  Company Number: US-JNJFOC-20121213096

PATIENT
  Age: 65 Year
  Sex: Male
  Weight: 86.18 kg

DRUGS (9)
  1. XARELTO [Suspect]
     Indication: THROMBOSIS PROPHYLAXIS
     Route: 048
     Dates: start: 20120926, end: 20120928
  2. XARELTO [Suspect]
     Indication: HIP ARTHROPLASTY
     Route: 048
     Dates: start: 20120926, end: 20120928
  3. PAIN MEDICATION (UNKNOWN) [Concomitant]
     Indication: HIP ARTHROPLASTY
     Route: 065
  4. CELEBREX [Concomitant]
     Indication: ARTHRITIS
     Route: 065
  5. CYMBALTA [Concomitant]
     Indication: ARTHRITIS
     Route: 065
  6. VICODIN [Concomitant]
     Indication: ARTHRITIS
     Route: 065
  7. ZEGERID [Concomitant]
     Indication: BARRETT^S OESOPHAGUS
     Route: 065
  8. FISH OIL [Concomitant]
     Route: 065
  9. GLUCOSAMINE / CHONDROITIN [Concomitant]
     Route: 065

REACTIONS (2)
  - Haemorrhage [Recovered/Resolved]
  - Haemoglobin decreased [Unknown]
